FAERS Safety Report 4700509-7 (Version None)
Quarter: 2005Q2

REPORT INFORMATION
  Report Type: 
  Country: None (occurrence: None)
  Receive Date: 20050624
  Receipt Date: 20050608
  Transmission Date: 20051028
  Serious: Yes (Hospitalization)
  Sender: FDA-Public Use
  Company Number: 106865ISR

PATIENT
  Age: 58 Year
  Sex: Male

DRUGS (3)
  1. FLUOROURACIL [Suspect]
     Indication: COLON CANCER
     Dosage: 400 MG/M2, INTRAVENOUS (NOS)
     Route: 042
     Dates: start: 20050510, end: 20050512
  2. OXALIPLATIN [Suspect]
     Indication: COLON CANCER
     Dosage: 193 MILLIGRAM, INTRAVENOUS (NOS)
     Route: 042
     Dates: start: 20050510, end: 20050510
  3. CALCIUM LEVOFOLINATE [Suspect]
     Indication: COLON CANCER
     Dosage: 386 MILLIGRAM, INTRAVENOUS (NOS)
     Route: 042
     Dates: start: 20050510, end: 20050510

REACTIONS (3)
  - APHASIA [None]
  - CONFUSIONAL STATE [None]
  - HEMIPARESIS [None]
